FAERS Safety Report 18757498 (Version 1)
Quarter: 2021Q1

REPORT INFORMATION
  Report Type: Spontaneous
  Country: US (occurrence: US)
  Receive Date: 20210114
  Receipt Date: 20210114
  Transmission Date: 20210419
  Serious: Yes (Death, Life-Threatening)
  Sender: FDA-Public Use
  Company Number: US-AMNEAL PHARMACEUTICALS-2021-AMRX-00060

PATIENT
  Age: 62 Year
  Sex: Female

DRUGS (1)
  1. METFORMIN HYDROCHLORIDE ER [Suspect]
     Active Substance: METFORMIN HYDROCHLORIDE
     Indication: SUICIDE ATTEMPT
     Dosage: 270 GRAM, SINGLE
     Route: 048

REACTIONS (6)
  - Completed suicide [Fatal]
  - Hypotension [Unknown]
  - Cardiac arrest [Fatal]
  - Hyperglycaemia [Unknown]
  - Intentional overdose [Fatal]
  - Metabolic acidosis [Unknown]
